FAERS Safety Report 5877934-4 (Version None)
Quarter: 2008Q3

REPORT INFORMATION
  Report Type: 
  Country: None (occurrence: None)
  Receive Date: 20080911
  Receipt Date: 20080908
  Transmission Date: 20090109
  Serious: Yes (Hospitalization)
  Sender: FDA-Public Use
  Company Number: B0533781A

PATIENT
  Age: 71 Year
  Sex: Female
  Weight: 65 kg

DRUGS (8)
  1. VALTREX [Suspect]
     Indication: HERPES ZOSTER
     Dosage: 1000MG THREE TIMES PER DAY
     Route: 048
     Dates: start: 20080808, end: 20080808
  2. LOXONIN [Concomitant]
     Indication: ANALGESIA
     Dosage: 180MG PER DAY
     Route: 048
     Dates: start: 20080808, end: 20080808
  3. MUCOSTA [Concomitant]
     Dosage: 300MG PER DAY
     Route: 048
     Dates: start: 20080808, end: 20080808
  4. METHYLCOBAL [Concomitant]
     Indication: NEURALGIA
     Dosage: 1.5MG PER DAY
     Route: 065
     Dates: start: 20080808, end: 20080808
  5. BLOPRESS [Concomitant]
     Indication: HYPERTENSION
     Dosage: 8MG PER DAY
     Route: 048
     Dates: end: 20080808
  6. AMLODIPINE BESYLATE [Concomitant]
     Indication: HYPERTENSION
     Dosage: 5MG PER DAY
     Route: 048
     Dates: end: 20080808
  7. GASTER D [Concomitant]
     Dosage: 20MG PER DAY
     Route: 048
     Dates: end: 20080808
  8. PRAVASTATIN [Concomitant]
     Dosage: 10MG PER DAY
     Route: 048
     Dates: end: 20080808

REACTIONS (3)
  - NAUSEA [None]
  - RENAL FAILURE [None]
  - VOMITING [None]
